FAERS Safety Report 9284023 (Version 2)
Quarter: 2014Q3

REPORT INFORMATION
  Report Type: Spontaneous
  Country: US (occurrence: US)
  Receive Date: 20130510
  Receipt Date: 20140808
  Transmission Date: 20150326
  Serious: Yes (Hospitalization)
  Sender: FDA-Public Use
  Company Number: US-BAYER-2013-057598

PATIENT
  Age: 33 Year
  Sex: Female
  Weight: 91 kg

DRUGS (1)
  1. YAZ [Suspect]
     Active Substance: DROSPIRENONE\ETHINYL ESTRADIOL
     Indication: POLYCYSTIC OVARIES
     Dosage: UNK
     Route: 048
     Dates: start: 2008, end: 2008

REACTIONS (11)
  - Malaise [None]
  - Atypical pneumonia [None]
  - Pain [None]
  - Abdominal pain [None]
  - Injury [None]
  - General physical health deterioration [None]
  - Anxiety [None]
  - Dyspnoea [None]
  - Pulmonary embolism [None]
  - Emotional distress [None]
  - Gait disturbance [None]

NARRATIVE: CASE EVENT DATE: 200804
